FAERS Safety Report 14710683 (Version 2)
Quarter: 2022Q1

REPORT INFORMATION
  Report Type: Spontaneous
  Country: US (occurrence: None)
  Receive Date: 20180403
  Receipt Date: 20220323
  Transmission Date: 20220424
  Serious: No
  Sender: FDA-Public Use
  Company Number: US-ROCHE-1911731

PATIENT
  Sex: Male

DRUGS (9)
  1. ERIVEDGE [Suspect]
     Active Substance: VISMODEGIB
     Indication: Basal cell carcinoma
     Dosage: TAKE 1 CAPS BY MOUTH EVERY DAY
     Route: 048
  2. WARFARIN [Concomitant]
     Active Substance: WARFARIN
  3. OMEPRAZOLE [Concomitant]
     Active Substance: OMEPRAZOLE
  4. GLIMEPIRIDE [Concomitant]
     Active Substance: GLIMEPIRIDE
  5. SYNTHROID [Concomitant]
     Active Substance: LEVOTHYROXINE SODIUM
  6. HYDROCORTISONE [Concomitant]
     Active Substance: HYDROCORTISONE
  7. ANDRODERM [Concomitant]
     Active Substance: TESTOSTERONE
  8. DIAZEPAM [Concomitant]
     Active Substance: DIAZEPAM
  9. OXYCODONE HYDROCHLORIDE [Concomitant]
     Active Substance: OXYCODONE HYDROCHLORIDE

REACTIONS (2)
  - Muscle spasms [Unknown]
  - Muscle spasms [Not Recovered/Not Resolved]
